FAERS Safety Report 25146799 (Version 8)
Quarter: 2025Q4

REPORT INFORMATION
  Report Type: Spontaneous
  Country: US (occurrence: US)
  Receive Date: 20250401
  Receipt Date: 20251013
  Transmission Date: 20260118
  Serious: Yes (Other)
  Sender: BRISTOL-MYERS SQUIBB COMPANY
  Company Number: US-BRISTOL-MYERS SQUIBB COMPANY-2025-047174

PATIENT
  Age: 69 Year
  Sex: Female

DRUGS (50)
  1. CAMZYOS [Suspect]
     Active Substance: MAVACAMTEN
     Indication: Hypertrophic cardiomyopathy
  2. CAMZYOS [Suspect]
     Active Substance: MAVACAMTEN
     Dates: start: 20250614
  3. ASPIRIN [Concomitant]
     Active Substance: ASPIRIN
     Indication: Coronary artery disease
     Dates: start: 20211027
  4. ASPIRIN [Concomitant]
     Active Substance: ASPIRIN
     Indication: Atrial fibrillation
  5. ASPIRIN [Concomitant]
     Active Substance: ASPIRIN
     Indication: Hypertrophic cardiomyopathy
  6. ASPIRIN [Concomitant]
     Active Substance: ASPIRIN
     Indication: Mitral valve incompetence
  7. METOPROLOL SUCCINATE [Concomitant]
     Active Substance: METOPROLOL SUCCINATE
     Indication: Coronary artery disease
     Dosage: XL
     Dates: start: 20210317
  8. METOPROLOL SUCCINATE [Concomitant]
     Active Substance: METOPROLOL SUCCINATE
     Indication: Hypertrophic cardiomyopathy
  9. METOPROLOL SUCCINATE [Concomitant]
     Active Substance: METOPROLOL SUCCINATE
     Indication: Hypertension
  10. METOPROLOL SUCCINATE [Concomitant]
     Active Substance: METOPROLOL SUCCINATE
     Indication: Atrial fibrillation
  11. METOPROLOL SUCCINATE [Concomitant]
     Active Substance: METOPROLOL SUCCINATE
     Indication: Mitral valve prolapse
  12. METOPROLOL SUCCINATE [Concomitant]
     Active Substance: METOPROLOL SUCCINATE
     Indication: Palpitations
  13. FLUDROCORTISONE [Concomitant]
     Active Substance: FLUDROCORTISONE
     Indication: Orthostatic hypotension
     Dates: start: 20210707
  14. FLUDROCORTISONE [Concomitant]
     Active Substance: FLUDROCORTISONE
     Indication: Sjogren^s syndrome
  15. ROSUVASTATIN [Concomitant]
     Active Substance: ROSUVASTATIN
     Indication: Coronary artery disease
     Dates: start: 20210326
  16. ROSUVASTATIN [Concomitant]
     Active Substance: ROSUVASTATIN
     Indication: Hypertrophic cardiomyopathy
  17. ROSUVASTATIN [Concomitant]
     Active Substance: ROSUVASTATIN
     Indication: Atrial fibrillation
  18. ROSUVASTATIN [Concomitant]
     Active Substance: ROSUVASTATIN
     Indication: Mitral valve incompetence
  19. FAMOTIDINE [Concomitant]
     Active Substance: FAMOTIDINE
     Indication: Gastroenteritis viral
     Dates: start: 2021
  20. DOCUSATE SODIUM [Concomitant]
     Active Substance: DOCUSATE SODIUM
     Indication: Constipation
     Dates: start: 2022
  21. CALCIUM CARBONATE\CHOLECALCIFEROL [Concomitant]
     Active Substance: CALCIUM CARBONATE\CHOLECALCIFEROL
     Indication: Coronary artery disease
     Dosage: 500MG-5MCG
     Dates: start: 2020
  22. VITAMIN C [Concomitant]
     Active Substance: ASCORBIC ACID
     Indication: COVID-19
  23. VITAMIN C [Concomitant]
     Active Substance: ASCORBIC ACID
     Indication: Torticollis
  24. VITAMIN D3 [Concomitant]
     Active Substance: CHOLECALCIFEROL
     Indication: Coronary artery disease
     Dosage: 2000 UNITS
  25. COENZYME Q10 [Concomitant]
     Active Substance: DIETARY SUPPLEMENT\UBIDECARENONE
     Indication: Hypertension
  26. COENZYME Q10 [Concomitant]
     Active Substance: DIETARY SUPPLEMENT\UBIDECARENONE
     Indication: Migraine
  27. COENZYME Q10 [Concomitant]
     Active Substance: DIETARY SUPPLEMENT\UBIDECARENONE
     Indication: Coronary artery disease
  28. ZINC ACETATE [Concomitant]
     Active Substance: ZINC ACETATE
     Indication: Infection prophylaxis
     Dates: start: 20210208
  29. VITAMINS [Concomitant]
     Active Substance: VITAMINS
     Indication: Supplementation therapy
     Dates: start: 20211027
  30. VITAMINS [Concomitant]
     Active Substance: VITAMINS
     Indication: Coronary artery disease
  31. VITAMINS [Concomitant]
     Active Substance: VITAMINS
     Indication: Hypertension
  32. VITAMINS [Concomitant]
     Active Substance: VITAMINS
     Indication: Hypertrophic cardiomyopathy
  33. MIDODRINE [Concomitant]
     Active Substance: MIDODRINE
     Indication: Orthostatic hypotension
  34. XANAX [Concomitant]
     Active Substance: ALPRAZOLAM
     Indication: Anxiety
  35. SALINE [Concomitant]
     Active Substance: SODIUM CHLORIDE
     Indication: Fluid replacement
  36. SALINE [Concomitant]
     Active Substance: SODIUM CHLORIDE
     Indication: Dehydration
  37. RESTASIS [Concomitant]
     Active Substance: CYCLOSPORINE
     Indication: Dry eye
  38. RECLAST [Concomitant]
     Active Substance: ZOLEDRONIC ACID
     Indication: Torticollis
  39. AUGMENTIN [Concomitant]
     Active Substance: AMOXICILLIN\CLAVULANATE POTASSIUM
     Indication: Otitis media
  40. AUGMENTIN [Concomitant]
     Active Substance: AMOXICILLIN\CLAVULANATE POTASSIUM
     Indication: Upper respiratory tract infection
  41. AUGMENTIN [Concomitant]
     Active Substance: AMOXICILLIN\CLAVULANATE POTASSIUM
     Indication: COVID-19
  42. TYLENOL [Concomitant]
     Active Substance: ACETAMINOPHEN
     Indication: Product used for unknown indication
  43. MAGNESIUM OXIDE [Concomitant]
     Active Substance: MAGNESIUM OXIDE
     Indication: Supplementation therapy
  44. MAGNESIUM OXIDE [Concomitant]
     Active Substance: MAGNESIUM OXIDE
     Indication: Laxative supportive care
  45. MAGNESIUM OXIDE [Concomitant]
     Active Substance: MAGNESIUM OXIDE
     Indication: Migraine
  46. MAGNESIUM OXIDE [Concomitant]
     Active Substance: MAGNESIUM OXIDE
     Indication: Coronary artery disease
  47. GUAIFENESIN [Concomitant]
     Active Substance: GUAIFENESIN
     Indication: Product used for unknown indication
  48. METOPROLOL [Concomitant]
     Active Substance: METOPROLOL
     Indication: Product used for unknown indication
  49. CALCIUM [Concomitant]
     Active Substance: CALCIUM
     Indication: Product used for unknown indication
  50. ZINC [Concomitant]
     Active Substance: ZINC
     Indication: Product used for unknown indication

REACTIONS (11)
  - Hypersensitivity [Recovering/Resolving]
  - Fatigue [Recovering/Resolving]
  - Dyspnoea [Recovering/Resolving]
  - Cardiac flutter [Recovered/Resolved]
  - Gastrointestinal disorder [Recovering/Resolving]
  - Hot flush [Unknown]
  - Atrial fibrillation [Recovered/Resolved]
  - Paraesthesia oral [Unknown]
  - Product dose omission issue [Unknown]
  - Left ventricular outflow tract gradient increased [Unknown]
  - Off label use [Unknown]

NARRATIVE: CASE EVENT DATE: 20250601
